FAERS Safety Report 8988136 (Version 2)
Quarter: 2013Q3

REPORT INFORMATION
  Report Type: Spontaneous
  Country: GB (occurrence: GB)
  Receive Date: 20121227
  Receipt Date: 20130930
  Transmission Date: 20140515
  Serious: Yes (Hospitalization)
  Sender: FDA-Public Use
  Company Number: GB-PFIZER INC-2012318228

PATIENT
  Age: 84 Year
  Sex: Female

DRUGS (5)
  1. AMLODIPINE BESILATE [Suspect]
     Indication: BLOOD PRESSURE
     Dosage: 5 MG, 1X/DAY
     Route: 065
  2. LISINOPRIL [Suspect]
     Indication: BLOOD PRESSURE
     Dosage: 10 MG, 1X/DAY
     Route: 065
  3. BISOPROLOL FUMARATE [Suspect]
     Indication: ANGINA PECTORIS
     Dosage: UNK
     Route: 065
  4. FOLIC ACID [Concomitant]
     Indication: MUSCLE SPASMS
     Dosage: UNK
     Route: 065
  5. GALFER [Concomitant]
     Indication: MINERAL SUPPLEMENTATION
     Dosage: UNK
     Route: 065

REACTIONS (5)
  - Drug ineffective [Unknown]
  - Hypertension [Unknown]
  - Muscle spasms [Unknown]
  - Wrong technique in drug usage process [Unknown]
  - Muscle spasms [Unknown]
